FAERS Safety Report 25859952 (Version 1)
Quarter: 2025Q3

REPORT INFORMATION
  Report Type: Spontaneous
  Country: US (occurrence: None)
  Receive Date: 20250927
  Receipt Date: 20250927
  Transmission Date: 20251020
  Serious: Yes (Other)
  Sender: FDA-CTU
  Company Number: None

PATIENT
  Age: 45 Year
  Sex: Female
  Weight: 58.5 kg

DRUGS (3)
  1. DOXYCYCLINE [Suspect]
     Active Substance: DOXYCYCLINE
     Indication: Eye infection
     Route: 048
     Dates: start: 20250718, end: 20250731
  2. DOXYCYCLINE [Suspect]
     Active Substance: DOXYCYCLINE
     Indication: Hordeolum
  3. Pure dopa plus [Concomitant]

REACTIONS (4)
  - Hypersensitivity [None]
  - Swelling [None]
  - Lip swelling [None]
  - Lip pain [None]

NARRATIVE: CASE EVENT DATE: 20250724
